FAERS Safety Report 7002219-2 (Version None)
Quarter: 2010Q3

REPORT INFORMATION
  Report Type: 
  Country: None (occurrence: None)
  Receive Date: 20100920
  Receipt Date: 20070827
  Transmission Date: 20110219
  Serious: Yes (Hospitalization, Other)
  Sender: FDA-Public Use
  Company Number: US-ASTRAZENECA-2006UW26146

PATIENT
  Age: 30 Year
  Sex: Male
  Weight: 88.7 kg

DRUGS (5)
  1. SEROQUEL [Suspect]
     Indication: PSYCHOTIC DISORDER
     Dosage: 200 MG-300 MG
     Route: 048
     Dates: start: 20030101, end: 20050101
  2. SEROQUEL [Suspect]
     Dosage: 200 - 300 MG
     Route: 048
     Dates: start: 20030904
  3. ABILIFY [Concomitant]
     Dates: start: 20040720
  4. GEODON [Concomitant]
     Dosage: 80 - 160 MG
     Dates: start: 20020709
  5. ZYPREXA [Concomitant]
     Dates: start: 20020528

REACTIONS (3)
  - BLOOD GLUCOSE INCREASED [None]
  - DIABETES MELLITUS INADEQUATE CONTROL [None]
  - TYPE 2 DIABETES MELLITUS [None]
